FAERS Safety Report 9366180 (Version 1)
Quarter: 2013Q4

REPORT INFORMATION
  Report Type: Spontaneous
  Country: AU (occurrence: None)
  Receive Date: 20130619
  Receipt Date: 20130619
  Transmission Date: 20140711
  Serious: Yes (Hospitalization)
  Sender: FDA-Public Use
  Company Number: 2013AP006046

PATIENT
  Age: 20 Month
  Sex: Male

DRUGS (3)
  1. LAMOTRIGINE (LAMOTRIGINE) [Suspect]
     Indication: ACCIDENTAL EXPOSURE TO PRODUCT BY CHILD
  2. BUPROPION (BUPROPION) [Suspect]
     Indication: ACCIDENTAL EXPOSURE TO PRODUCT BY CHILD
  3. PAROXETINE (PAROXETINE) [Suspect]
     Indication: ACCIDENTAL EXPOSURE TO PRODUCT BY CHILD

REACTIONS (5)
  - Accidental exposure to product by child [None]
  - Agitation [None]
  - Depressed level of consciousness [None]
  - Dyskinesia [None]
  - Medication error [None]
